FAERS Safety Report 15894372 (Version 1)
Quarter: 2019Q1

REPORT INFORMATION
  Report Type: Spontaneous
  Country: IR (occurrence: IR)
  Receive Date: 20190131
  Receipt Date: 20190131
  Transmission Date: 20190417
  Serious: Yes (Hospitalization, Other)
  Sender: FDA-Public Use
  Company Number: IR-ACCORD-103657

PATIENT
  Age: 21 Year
  Sex: Female

DRUGS (5)
  1. LITHIUM. [Suspect]
     Active Substance: LITHIUM
     Indication: MANIA
     Dosage: UP TO 1200 MG/DAY WITH 1 MG/DL OF SERUM LEVEL
  2. LITHIUM CARBONATE. [Suspect]
     Active Substance: LITHIUM CARBONATE
     Indication: MANIA
     Dosage: UP TO 1200 MG/DAY WITH 1 MG/DL OF SERUM LEVEL
  3. QUETIAPINE. [Suspect]
     Active Substance: QUETIAPINE
     Indication: MANIA
     Dosage: UP TO 600 MG/DAY
  4. BIPERIDEN [Suspect]
     Active Substance: BIPERIDEN
     Indication: MANIA
     Dosage: BIPERIDEN UP TO 4 MG/DAY
  5. BIPERIDEN [Suspect]
     Active Substance: BIPERIDEN
     Indication: MANIA
     Dosage: BIPERIDEN UP TO 4 MG/DAY

REACTIONS (1)
  - Catatonia [Recovered/Resolved]
